FAERS Safety Report 9455502 (Version 3)
Quarter: 2013Q3

REPORT INFORMATION
  Report Type: Report from Study
  Country: JP (occurrence: JP)
  Receive Date: 20130813
  Receipt Date: 20130923
  Transmission Date: 20140515
  Serious: Yes (Other)
  Sender: FDA-Public Use
  Company Number: JP-JNJFOC-20130614376

PATIENT
  Age: 56 Year
  Sex: Male
  Weight: 52 kg

DRUGS (22)
  1. ONEDURO [Suspect]
     Indication: CANCER PAIN
     Route: 062
     Dates: start: 20130122
  2. ONEDURO [Suspect]
     Indication: CANCER PAIN
     Route: 062
     Dates: start: 20130115, end: 20130121
  3. IRINOTECAN HYDROCHLORIDE [Suspect]
     Indication: CANCER PAIN
     Route: 065
     Dates: start: 20130226, end: 20130226
  4. TEGAFUR;GIMERACIL;OTERACIL POTASSIUM [Suspect]
     Indication: CANCER PAIN
     Route: 048
     Dates: end: 20130219
  5. OXINORM (OXYCODONE HYDROCHLORIDE) [Concomitant]
     Indication: CANCER PAIN
     Route: 048
     Dates: start: 20130122, end: 20130128
  6. CETUXIMAB [Concomitant]
     Indication: CANCER PAIN
     Route: 065
     Dates: start: 20130115, end: 20130219
  7. GRAN [Concomitant]
     Indication: FEBRILE NEUTROPENIA
     Route: 065
     Dates: start: 20130305, end: 20130307
  8. GRAN [Concomitant]
     Indication: DIARRHOEA
     Route: 065
     Dates: start: 20130305, end: 20130307
  9. MAXIPIME [Concomitant]
     Indication: FEBRILE NEUTROPENIA
     Route: 065
     Dates: start: 20130305, end: 20130315
  10. MAXIPIME [Concomitant]
     Indication: DIARRHOEA
     Route: 065
     Dates: start: 20130305, end: 20130315
  11. TAKEPRON [Concomitant]
     Indication: PROPHYLAXIS
     Route: 048
  12. TAKEPRON [Concomitant]
     Indication: CANCER PAIN
     Route: 048
  13. LOXONIN [Concomitant]
     Indication: CANCER PAIN
     Route: 048
  14. DECADRON [Concomitant]
     Indication: CANCER PAIN
     Route: 048
  15. ADONA [Concomitant]
     Indication: HAEMOPTYSIS
     Route: 048
  16. ADONA [Concomitant]
     Indication: CANCER PAIN
     Route: 048
  17. TRANSAMIN [Concomitant]
     Indication: HAEMOPTYSIS
     Route: 048
  18. TRANSAMIN [Concomitant]
     Indication: CANCER PAIN
     Route: 048
  19. CINAL [Concomitant]
     Indication: CANCER PAIN
     Route: 048
  20. BUSCOPAN [Concomitant]
     Indication: DIARRHOEA
     Route: 065
     Dates: start: 20130305, end: 20130315
  21. AMIGRAND [Concomitant]
     Indication: DIARRHOEA
     Route: 065
     Dates: start: 20130305, end: 20130315
  22. MAINTENANCE MEDIUM WITH GLUCOSE [Concomitant]
     Indication: DIARRHOEA
     Route: 065
     Dates: start: 20130305, end: 20130315

REACTIONS (4)
  - Febrile neutropenia [Recovered/Resolved]
  - Haemoptysis [Recovered/Resolved]
  - Drug intolerance [Unknown]
  - Diarrhoea [Recovering/Resolving]
